FAERS Safety Report 4493136-0 (Version None)
Quarter: 2004Q4

REPORT INFORMATION
  Report Type: 
  Country: None (occurrence: None)
  Receive Date: 20041029
  Receipt Date: 20041020
  Transmission Date: 20050328
  Serious: Yes (Death, Life-Threatening, Hospitalization)
  Sender: FDA-Public Use
  Company Number: HQ4884228OCT2002

PATIENT
  Age: 70 Year
  Sex: Male
  Weight: 68.1 kg

DRUGS (9)
  1. MYLOTARG [Suspect]
     Indication: ACUTE MYELOID LEUKAEMIA
     Dosage: 16 MG 1X PER 1 DAY, INTRAVENOUS
     Route: 042
     Dates: start: 20021010, end: 20021010
  2. REMERON [Concomitant]
  3. MULTIVITAMINS, PLAIN (MULTIVITAMINS PLAIN) [Concomitant]
  4. ZESTRIL [Concomitant]
  5. NEXIUM [Concomitant]
  6. POTASSIUM CHLORIDE [Concomitant]
  7. VICODIN [Concomitant]
  8. ADVIL [Concomitant]
  9. LANOXN (DIGOXIN) [Concomitant]

REACTIONS (15)
  - ABDOMINAL PAIN [None]
  - ACUTE MYELOID LEUKAEMIA [None]
  - ASCITES [None]
  - ATRIAL FIBRILLATION [None]
  - BACK PAIN [None]
  - BLOOD CULTURE POSITIVE [None]
  - CHILLS [None]
  - DISEASE PROGRESSION [None]
  - HEART RATE IRREGULAR [None]
  - HYPOTENSION [None]
  - HYPOXIA [None]
  - METABOLIC ACIDOSIS [None]
  - RESPIRATORY DISTRESS [None]
  - STAPHYLOCOCCAL INFECTION [None]
  - TACHYCARDIA [None]
